FAERS Safety Report 9708707 (Version 2)
Quarter: 2014Q1

REPORT INFORMATION
  Report Type: Spontaneous
  Country: US (occurrence: US)
  Receive Date: 20131125
  Receipt Date: 20140117
  Transmission Date: 20141002
  Serious: Yes (Hospitalization)
  Sender: FDA-Public Use
  Company Number: US-GLAXOSMITHKLINE-A1050456A

PATIENT
  Age: 90 Year
  Sex: Female

DRUGS (6)
  1. ADVAIR [Suspect]
     Indication: DYSPNOEA
     Dosage: 1PUFF TWICE PER DAY
     Route: 055
  2. FUROSEMIDE [Concomitant]
  3. LEVOTHYROXINE [Concomitant]
  4. AMITRIPTYLINE [Concomitant]
  5. BYSTOLIC [Concomitant]
  6. DIOVAN [Concomitant]

REACTIONS (14)
  - Pneumonia [Unknown]
  - Pleurisy [Unknown]
  - Pulmonary congestion [Unknown]
  - Chest pain [Unknown]
  - Breast pain [Unknown]
  - Non-cardiac chest pain [Unknown]
  - Wheezing [Unknown]
  - Dyspnoea [Unknown]
  - Malaise [Unknown]
  - Poor quality sleep [Unknown]
  - Underdose [Unknown]
  - Incorrect dose administered [Unknown]
  - Drug ineffective for unapproved indication [Unknown]
  - Product quality issue [Unknown]
